FAERS Safety Report 6163215-0 (Version None)
Quarter: 2009Q2

REPORT INFORMATION
  Report Type: 
  Country: None (occurrence: None)
  Receive Date: 20090420
  Receipt Date: 20090413
  Transmission Date: 20091009
  Serious: Yes (Other)
  Sender: FDA-Public Use
  Company Number: 2009-0009

PATIENT

DRUGS (1)
  1. DITROPAN [Suspect]
     Indication: INCONTINENCE

REACTIONS (3)
  - BRADYKINESIA [None]
  - DISTURBANCE IN ATTENTION [None]
  - MEMORY IMPAIRMENT [None]
